FAERS Safety Report 14470491 (Version 1)
Quarter: 2018Q1

REPORT INFORMATION
  Report Type: Spontaneous
  Country: JP (occurrence: JP)
  Receive Date: 20180131
  Receipt Date: 20180131
  Transmission Date: 20180509
  Serious: Yes (Hospitalization, Disabling)
  Sender: FDA-Public Use
  Company Number: JP-SA-2018SA021461

PATIENT
  Age: 68 Year
  Sex: Male

DRUGS (6)
  1. CLOPIDOGREL BISULFATE. [Suspect]
     Active Substance: CLOPIDOGREL BISULFATE
     Indication: ANTIPLATELET THERAPY
     Route: 048
  2. CILOSTAZOL. [Suspect]
     Active Substance: CILOSTAZOL
     Indication: ANTIPLATELET THERAPY
     Route: 065
  3. CLOPIDOGREL BISULFATE. [Suspect]
     Active Substance: CLOPIDOGREL BISULFATE
     Indication: ANTIPLATELET THERAPY
     Route: 065
  4. FUTHAN [Concomitant]
     Active Substance: NAFAMOSTAT MESYLATE
  5. HEPARIN [Suspect]
     Active Substance: HEPARIN SODIUM
     Route: 065
  6. CILOSTAZOL. [Suspect]
     Active Substance: CILOSTAZOL
     Indication: ANTIPLATELET THERAPY
     Route: 048

REACTIONS (9)
  - Back pain [Recovering/Resolving]
  - Subcutaneous haematoma [Recovered/Resolved]
  - Mobility decreased [Recovering/Resolving]
  - Extradural haematoma [Recovered/Resolved]
  - Venous haemorrhage [Recovered/Resolved]
  - Pain in extremity [Recovering/Resolving]
  - Hypoaesthesia [Recovering/Resolving]
  - Gait disturbance [Recovering/Resolving]
  - Arterial haemorrhage [Recovered/Resolved]
